FAERS Safety Report 5117967-9 (Version None)
Quarter: 2006Q3

REPORT INFORMATION
  Report Type: 
  Country: None (occurrence: None)
  Receive Date: 20060926
  Receipt Date: 20060911
  Transmission Date: 20061208
  Serious: Yes (Other)
  Sender: FDA-Public Use
  Company Number: US200606002922

PATIENT
  Age: 41 Year
  Sex: Male
  Weight: 98.4 kg

DRUGS (3)
  1. ZYPREXA [Suspect]
     Dosage: 20 MG
     Dates: start: 19980101
  2. PROZAC [Concomitant]
  3. CARBAMAZEPINE [Concomitant]

REACTIONS (9)
  - BLOOD CHOLESTEROL INCREASED [None]
  - BLOOD TRIGLYCERIDES INCREASED [None]
  - DIABETES MELLITUS [None]
  - HYPERGLYCAEMIA [None]
  - HYPERTENSION [None]
  - HYPOGLYCAEMIA [None]
  - METABOLIC DISORDER [None]
  - OBESITY [None]
  - WEIGHT DECREASED [None]
